FAERS Safety Report 20925173 (Version 5)
Quarter: 2022Q3

REPORT INFORMATION
  Report Type: Spontaneous
  Country: US (occurrence: US)
  Receive Date: 20220607
  Receipt Date: 20220928
  Transmission Date: 20221027
  Serious: Yes (Other)
  Sender: FDA-Public Use
  Company Number: US-PFIZER INC-202200804439

PATIENT
  Age: 54 Year
  Sex: Female

DRUGS (1)
  1. IBRANCE [Suspect]
     Active Substance: PALBOCICLIB
     Dosage: 21-DAY ^ON^ CYCLE

REACTIONS (6)
  - Pulmonary oedema [Unknown]
  - Extra dose administered [Not Recovered/Not Resolved]
  - White blood cell count decreased [Unknown]
  - Full blood count abnormal [Unknown]
  - Bradyphrenia [Not Recovered/Not Resolved]
  - Fatigue [Unknown]

NARRATIVE: CASE EVENT DATE: 20220101
